FAERS Safety Report 17867262 (Version 2)
Quarter: 2020Q3

REPORT INFORMATION
  Report Type: Spontaneous
  Country: FR (occurrence: FR)
  Receive Date: 20200605
  Receipt Date: 20200902
  Transmission Date: 20201103
  Serious: Yes (Death, Other)
  Sender: FDA-Public Use
  Company Number: FR-MALLINCKRODT-T202002509

PATIENT

DRUGS (3)
  1. CYCLOSPORINE. [Concomitant]
     Active Substance: CYCLOSPORINE
     Indication: PROPHYLAXIS AGAINST GRAFT VERSUS HOST DISEASE
     Dosage: UNK
     Route: 065
  2. UVADEX [Suspect]
     Active Substance: METHOXSALEN
     Indication: ACUTE GRAFT VERSUS HOST DISEASE IN SKIN
     Dosage: 0.017ML PER1ML (EXTRACORPOREAL)
     Route: 050
  3. POSACONAZOLE [Concomitant]
     Active Substance: POSACONAZOLE
     Indication: ANTIFUNGAL PROPHYLAXIS
     Dosage: UNK
     Route: 065

REACTIONS (22)
  - Staphylococcal infection [Recovered/Resolved]
  - Pneumonia [Recovered/Resolved]
  - BK virus infection [Recovered/Resolved]
  - Enterocolitis viral [Recovered/Resolved]
  - Product use in unapproved indication [Unknown]
  - Acute lymphocytic leukaemia [Unknown]
  - Cystitis viral [Recovered/Resolved]
  - Bronchopulmonary aspergillosis [Recovered/Resolved]
  - Myelodysplastic syndrome [Unknown]
  - Chronic myelomonocytic leukaemia [Unknown]
  - Chronic graft versus host disease [Fatal]
  - Cytomegalovirus infection reactivation [Recovered/Resolved]
  - Pseudomonas infection [Recovered/Resolved]
  - Disease recurrence [Unknown]
  - Clostridium difficile colitis [Recovered/Resolved]
  - Therapy partial responder [Unknown]
  - Acute myeloid leukaemia recurrent [Unknown]
  - Epstein-Barr virus infection [Recovered/Resolved]
  - Sinusitis [Recovered/Resolved]
  - Therapy non-responder [Unknown]
  - Arrhythmia [Fatal]
  - Disease progression [Fatal]
